FAERS Safety Report 19602232 (Version 1)
Quarter: 2021Q3

REPORT INFORMATION
  Report Type: Report from Study
  Country: None (occurrence: CO)
  Receive Date: 20210724
  Receipt Date: 20210724
  Transmission Date: 20211014
  Serious: Yes (Other)
  Sender: FDA-Public Use
  Company Number: CO-ABBVIE-21K-036-4002913-00

PATIENT
  Sex: Female
  Weight: 55 kg

DRUGS (5)
  1. ALENDRONATE SODIUM. [Concomitant]
     Active Substance: ALENDRONATE SODIUM
     Indication: FRACTURE TREATMENT
     Route: 048
  2. HUMIRA [Suspect]
     Active Substance: ADALIMUMAB
     Indication: RHEUMATOID ARTHRITIS
     Route: 058
     Dates: start: 2019
  3. CALCIUM CARBONATE AND VITAMIN D [Concomitant]
     Active Substance: CALCIUM CARBONATE\VITAMIN D
     Indication: FRACTURE TREATMENT
     Route: 048
  4. HUMIRA [Suspect]
     Active Substance: ADALIMUMAB
     Indication: RHEUMATOID ARTHRITIS
     Route: 058
     Dates: start: 20141010
  5. CALCITRIOL AFT [Concomitant]
     Indication: FRACTURE TREATMENT
     Route: 048

REACTIONS (8)
  - Inguinal hernia [Unknown]
  - Uveitis [Recovering/Resolving]
  - Cataract [Recovering/Resolving]
  - Synovectomy [Unknown]
  - Uveitis [Recovering/Resolving]
  - Glaucoma [Recovering/Resolving]
  - Arthralgia [Recovering/Resolving]
  - Photophobia [Recovering/Resolving]

NARRATIVE: CASE EVENT DATE: 2019
